FAERS Safety Report 25902212 (Version 1)
Quarter: 2025Q4

REPORT INFORMATION
  Report Type: Spontaneous
  Country: US (occurrence: None)
  Receive Date: 20251009
  Receipt Date: 20251009
  Transmission Date: 20260118
  Serious: Yes (Other)
  Sender: FDA-CTU
  Company Number: None

PATIENT
  Sex: Male

DRUGS (11)
  1. XOLAIR [Suspect]
     Active Substance: OMALIZUMAB
     Indication: Asthma
     Dosage: FREQUENCY : EVERY OTHER WEEK;?
     Route: 058
     Dates: start: 20250502
  2. BUTALBITAL AND ACETAMINOPHEN [Concomitant]
     Active Substance: ACETAMINOPHEN\BUTALBITAL
  3. DULOXETINE [Concomitant]
     Active Substance: DULOXETINE
  4. FAMOTIDINE [Concomitant]
     Active Substance: FAMOTIDINE
  5. FLUTICASONE [Concomitant]
     Active Substance: FLUTICASONE
  6. FOLIC ACID [Concomitant]
     Active Substance: FOLIC ACID
  7. LEFLUNOMIDE [Concomitant]
     Active Substance: LEFLUNOMIDE
  8. LYRICA [Concomitant]
     Active Substance: PREGABALIN
  9. METHOTREXATE SODIUM [Concomitant]
     Active Substance: METHOTREXATE SODIUM
  10. MOUNJARO [Concomitant]
     Active Substance: TIRZEPATIDE
  11. NAPROXEN [Concomitant]
     Active Substance: NAPROXEN

REACTIONS (3)
  - Asthma [None]
  - Infection [None]
  - Impaired quality of life [None]
